FAERS Safety Report 24017487 (Version 1)
Quarter: 2024Q2

REPORT INFORMATION
  Report Type: Report from Study
  Country: US (occurrence: US)
  Receive Date: 20240627
  Receipt Date: 20240627
  Transmission Date: 20240716
  Serious: Yes (Hospitalization)
  Sender: FDA-Public Use
  Company Number: US-ROCHE-10000008491

PATIENT
  Age: 4 Year
  Sex: Female
  Weight: 10.43 kg

DRUGS (3)
  1. EVRYSDI [Suspect]
     Active Substance: RISDIPLAM
     Indication: Spinal muscular atrophy
     Dosage: 100 ML BOTTLE
     Route: 048
     Dates: start: 20240102
  2. EVRYSDI [Suspect]
     Active Substance: RISDIPLAM
     Route: 048
     Dates: start: 2020
  3. EVRYSDI [Suspect]
     Active Substance: RISDIPLAM
     Route: 048

REACTIONS (8)
  - Staphylococcus test positive [Unknown]
  - Pseudomonas test positive [Unknown]
  - Streptococcus test positive [Unknown]
  - Vomiting [Unknown]
  - Picornavirus infection [Recovered/Resolved]
  - Blood glucose decreased [Recovered/Resolved]
  - Developmental delay [Unknown]
  - Off label use [Unknown]

NARRATIVE: CASE EVENT DATE: 20240403
